FAERS Safety Report 4864208-3 (Version None)
Quarter: 2005Q4

REPORT INFORMATION
  Report Type: 
  Country: None (occurrence: None)
  Receive Date: 20051222
  Receipt Date: 20051212
  Transmission Date: 20060501
  Serious: Yes (Death, Hospitalization)
  Sender: FDA-Public Use
  Company Number: DE-AMGEN-UK159515

PATIENT
  Age: 44 Year
  Sex: Male

DRUGS (2)
  1. KEPIVANCE [Suspect]
     Indication: PROPHYLAXIS
     Route: 065
  2. CYCLOPHOSPHAMIDE [Concomitant]
     Route: 065

REACTIONS (8)
  - BLISTER [None]
  - COMPLICATIONS OF TRANSPLANT SURGERY [None]
  - ERYTHEMA [None]
  - HYPOCALCAEMIA [None]
  - INFECTION [None]
  - MUCOSAL INFLAMMATION [None]
  - SKIN EXFOLIATION [None]
  - TRANSPLANT FAILURE [None]
